FAERS Safety Report 14617266 (Version 2)
Quarter: 2018Q2

REPORT INFORMATION
  Report Type: Report from Study
  Country: US (occurrence: US)
  Receive Date: 20180309
  Receipt Date: 20180405
  Transmission Date: 20180711
  Serious: Yes (Other)
  Sender: FDA-Public Use
  Company Number: US-BIOGEN-2018BI00525882

PATIENT
  Age: 53 Year
  Sex: Female

DRUGS (4)
  1. TECFIDERA [Suspect]
     Active Substance: DIMETHYL FUMARATE
     Route: 048
     Dates: start: 2017
  2. TECFIDERA [Suspect]
     Active Substance: DIMETHYL FUMARATE
     Dosage: MAINTENANCE DOSE
     Route: 048
     Dates: start: 20180129, end: 20180225
  3. TECFIDERA [Suspect]
     Active Substance: DIMETHYL FUMARATE
     Dosage: TOOK FOR 5 WEEKS
     Route: 048
  4. TECFIDERA [Suspect]
     Active Substance: DIMETHYL FUMARATE
     Indication: MULTIPLE SCLEROSIS
     Dosage: TITRATION/INITIAL DOSE
     Route: 048
     Dates: start: 20180122, end: 20180128

REACTIONS (15)
  - Gait disturbance [Recovered/Resolved]
  - Erythema [Recovered/Resolved]
  - Palatal swelling [Recovered/Resolved]
  - Anal pruritus [Recovered/Resolved]
  - Dyspepsia [Unknown]
  - Vulvovaginal pruritus [Recovered/Resolved]
  - Flushing [Recovered/Resolved]
  - Abdominal pain [Not Recovered/Not Resolved]
  - Tremor [Recovered/Resolved]
  - Prescribed underdose [Recovered/Resolved]
  - Lip pruritus [Recovered/Resolved]
  - Diarrhoea [Unknown]
  - Pruritus [Recovered/Resolved]
  - Swelling face [Recovered/Resolved]
  - Tinnitus [Unknown]

NARRATIVE: CASE EVENT DATE: 20180201
